FAERS Safety Report 7693652-4 (Version None)
Quarter: 2011Q3

REPORT INFORMATION
  Report Type: 
  Country: None (occurrence: None)
  Receive Date: 20110819
  Receipt Date: 20110809
  Transmission Date: 20111222
  Serious: Yes (Hospitalization, Other)
  Sender: FDA-Public Use
  Company Number: JP-ROCHE-794693

PATIENT
  Sex: Female
  Weight: 72.8 kg

DRUGS (46)
  1. ACTEMRA [Suspect]
     Route: 041
     Dates: start: 20090914, end: 20090914
  2. ACTEMRA [Suspect]
     Route: 041
     Dates: start: 20110801
  3. PREDNISOLONE [Suspect]
     Route: 048
     Dates: start: 20090915, end: 20090928
  4. PREDNISOLONE [Suspect]
     Route: 048
     Dates: start: 20091111, end: 20091125
  5. PREDNISOLONE [Suspect]
     Route: 048
     Dates: start: 20091223, end: 20100119
  6. PREDNISOLONE [Suspect]
     Route: 048
     Dates: start: 20100120, end: 20100217
  7. PREDNISOLONE [Suspect]
     Route: 048
     Dates: start: 20100814
  8. NEORAL [Suspect]
     Route: 048
     Dates: start: 20090818, end: 20090928
  9. NORVASC [Concomitant]
     Route: 048
     Dates: start: 20100607
  10. ACTEMRA [Suspect]
     Dosage: DOSE INCREASED
     Route: 041
     Dates: start: 20100715, end: 20110101
  11. PREDNISOLONE [Suspect]
     Route: 048
     Dates: start: 20100317, end: 20100506
  12. PREDNISOLONE [Suspect]
     Route: 048
     Dates: start: 20100507, end: 20100601
  13. PREDNISOLONE [Suspect]
     Indication: JUVENILE ARTHRITIS
     Route: 048
     Dates: end: 20090702
  14. PREDNISOLONE [Suspect]
     Route: 048
     Dates: start: 20090721, end: 20090724
  15. PREDNISOLONE [Suspect]
     Route: 048
     Dates: start: 20100218, end: 20100316
  16. PREDNISOLONE [Suspect]
     Route: 048
     Dates: start: 20100716, end: 20100813
  17. NORVASC [Concomitant]
     Route: 048
     Dates: start: 20090803, end: 20091110
  18. ACTEMRA [Suspect]
     Route: 041
     Dates: start: 20100520, end: 20100601
  19. PREDNISOLONE [Suspect]
     Route: 048
     Dates: start: 20090804, end: 20090814
  20. PREDNISOLONE [Suspect]
     Route: 048
     Dates: start: 20091029, end: 20091110
  21. PREDNISOLONE [Suspect]
     Route: 048
     Dates: start: 20100610, end: 20100715
  22. ONEALFA [Concomitant]
     Route: 048
     Dates: start: 20080101
  23. ATARAX [Concomitant]
     Dosage: ROUTE; INJECTION (NOS)
     Route: 042
     Dates: start: 20090914, end: 20090914
  24. ACTEMRA [Suspect]
     Indication: JUVENILE ARTHRITIS
     Route: 041
     Dates: start: 20090817, end: 20090831
  25. PREDNISOLONE [Suspect]
     Route: 048
     Dates: start: 20090818, end: 20090831
  26. PREDNISOLONE [Suspect]
     Route: 048
     Dates: start: 20090901, end: 20090914
  27. FAMOTIDINE [Concomitant]
     Route: 048
     Dates: start: 20080101
  28. LISINOPRIL [Concomitant]
     Route: 048
     Dates: start: 20080101, end: 20090702
  29. LISINOPRIL [Concomitant]
     Route: 048
     Dates: start: 20090804
  30. ACTEMRA [Suspect]
     Route: 041
     Dates: start: 20100506, end: 20100506
  31. ACTEMRA [Suspect]
     Route: 041
     Dates: start: 20100614, end: 20100629
  32. PREDNISOLONE [Suspect]
     Route: 048
     Dates: start: 20090703, end: 20090713
  33. SOLU-CORTEF [Concomitant]
     Dosage: ROUTE; INJECTION (NOS)
     Route: 042
     Dates: start: 20090914, end: 20090914
  34. SOLU-MEDROL [Concomitant]
     Indication: RHEUMATOID ARTHRITIS
     Dates: start: 20090718, end: 20090720
  35. PREDNISOLONE [Concomitant]
     Indication: RHEUMATOID ARTHRITIS
     Dates: start: 20090714, end: 20090717
  36. PREDNISOLONE [Suspect]
     Route: 048
     Dates: start: 20090815, end: 20090817
  37. PREDNISOLONE [Suspect]
     Route: 048
     Dates: start: 20090929, end: 20091013
  38. PREDNISOLONE [Suspect]
     Route: 048
     Dates: start: 20091126, end: 20091208
  39. PREDNISOLONE [Suspect]
     Route: 048
     Dates: start: 20091209, end: 20091222
  40. SANDIMMUNE [Suspect]
     Indication: JUVENILE ARTHRITIS
     Dosage: FORM: INJECTIONROUTE: INTRAVENOUS (NOT OTHERWISE SPECIFIED)
     Route: 042
     Dates: start: 20090726, end: 20090808
  41. SANDIMMUNE [Suspect]
     Route: 042
     Dates: start: 20100601, end: 20100606
  42. NORVASC [Concomitant]
     Route: 048
     Dates: start: 20090719, end: 20090802
  43. SOLU-CORTEF [Concomitant]
     Dosage: ROUTE; INJECTION (NOS)
     Route: 042
     Dates: start: 20090928, end: 20090928
  44. ACTEMRA [Suspect]
     Route: 041
     Dates: start: 20090928, end: 20100414
  45. PREDNISOLONE [Suspect]
     Route: 048
     Dates: start: 20091014, end: 20091028
  46. NEORAL [Suspect]
     Indication: JUVENILE ARTHRITIS
     Route: 048
     Dates: start: 20090809, end: 20090817

REACTIONS (2)
  - DISSEMINATED INTRAVASCULAR COAGULATION [None]
  - HISTIOCYTOSIS HAEMATOPHAGIC [None]
